FAERS Safety Report 4284160-1 (Version None)
Quarter: 2004Q1

REPORT INFORMATION
  Report Type: 
  Country: None (occurrence: None)
  Receive Date: 20040203
  Receipt Date: 20040122
  Transmission Date: 20041129
  Serious: Yes (Life-Threatening)
  Sender: FDA-Public Use
  Company Number: FR-GLAXOSMITHKLINE-B0320659A

PATIENT
  Age: 76 Year
  Sex: Male
  Weight: 95 kg

DRUGS (2)
  1. DEROXAT [Suspect]
     Indication: DEPRESSION
     Dosage: 1UNIT SINGLE DOSE
     Route: 048
     Dates: start: 20031204, end: 20031204
  2. LEXOMIL [Concomitant]
     Indication: ANXIETY
     Route: 048

REACTIONS (4)
  - AKATHISIA [None]
  - ANXIETY [None]
  - MOOD ALTERED [None]
  - SUICIDAL IDEATION [None]
